FAERS Safety Report 19499642 (Version 2)
Quarter: 2021Q3

REPORT INFORMATION
  Report Type: Spontaneous
  Country: FI (occurrence: FI)
  Receive Date: 20210707
  Receipt Date: 20210820
  Transmission Date: 20211014
  Serious: No
  Sender: FDA-Public Use
  Company Number: FI-SA-2021SA214545

PATIENT

DRUGS (1)
  1. KLEXANE [Suspect]
     Active Substance: ENOXAPARIN
     Dosage: UNK
     Route: 065

REACTIONS (2)
  - No adverse event [Unknown]
  - Device safety feature issue [Unknown]
